FAERS Safety Report 4746789-3 (Version None)
Quarter: 2005Q3

REPORT INFORMATION
  Report Type: 
  Country: None (occurrence: None)
  Receive Date: 20050817
  Receipt Date: 20041129
  Transmission Date: 20060218
  Serious: Yes (Hospitalization, Disabling)
  Sender: FDA-Public Use
  Company Number: 200413662JP

PATIENT
  Age: 62 Year
  Sex: Female
  Weight: 47 kg

DRUGS (4)
  1. LASIX [Suspect]
     Indication: OEDEMA PERIPHERAL
     Route: 048
     Dates: start: 20041104, end: 20041129
  2. PREDONINE [Concomitant]
     Indication: MUSCULOSKELETAL PAIN
     Route: 048
     Dates: start: 20041104, end: 20041129
  3. GASTER [Concomitant]
     Route: 048
     Dates: start: 20041125, end: 20041129
  4. MUCOSTA [Concomitant]
     Route: 048
     Dates: start: 20041125, end: 20041129

REACTIONS (3)
  - DRUG ERUPTION [None]
  - JAUNDICE [None]
  - LIVER DISORDER [None]
